FAERS Safety Report 5448629-6 (Version None)
Quarter: 2007Q3

REPORT INFORMATION
  Report Type: 
  Country: None (occurrence: None)
  Receive Date: 20070906
  Receipt Date: 20070906
  Transmission Date: 20080115
  Serious: Yes (Other)
  Sender: FDA-Public Use
  Company Number: None

PATIENT
  Age: 51 Year
  Sex: Male
  Weight: 87.5442 kg

DRUGS (7)
  1. TOPOSAR [Suspect]
     Indication: SMALL CELL LUNG CANCER STAGE UNSPECIFIED
     Dosage: 200 MG IVPB IN 500 ML NS 1X IV DRIP
     Route: 041
     Dates: start: 20070904, end: 20070904
  2. CISPLATIN [Concomitant]
  3. SODIUM CHLORIDE [Concomitant]
  4. MAGNESIUM SULFATE [Concomitant]
  5. ONDANSETRON [Concomitant]
  6. DEXAMETHASONE 0.5MG TAB [Concomitant]
  7. MANNITOL [Concomitant]

REACTIONS (2)
  - BACK PAIN [None]
  - INFUSION RELATED REACTION [None]
